FAERS Safety Report 8590118-4 (Version None)
Quarter: 2012Q3

REPORT INFORMATION
  Report Type: 
  Country: None (occurrence: None)
  Receive Date: 20120813
  Receipt Date: 20120809
  Transmission Date: 20120928
  Serious: Yes (Other)
  Sender: FDA-Public Use
  Company Number: US-ABBOTT-12P-163-0966561-00

PATIENT
  Age: 32 Year
  Sex: Female

DRUGS (3)
  1. NORVIR [Suspect]
     Indication: ANTIRETROVIRAL THERAPY
     Dosage: TAKING AT CONCEPTION/100 MG/DAY
     Route: 048
  2. LAMIVUDINE NEVIRAPINE ZIDOVUDINE [Suspect]
     Indication: ANTIRETROVIRAL THERAPY
     Dosage: TAKING AT CONCEPTION/2 TAB/CAP DAILY
     Route: 048
  3. DARUNAVIR ETHANOLATE [Suspect]
     Indication: ANTIRETROVIRAL THERAPY
     Dosage: TAKING AT CONCEPTION/800 MG/DAY
     Route: 048

REACTIONS (1)
  - ABORTION SPONTANEOUS [None]
